FAERS Safety Report 6576222-0 (Version None)
Quarter: 2010Q1

REPORT INFORMATION
  Report Type: 
  Country: None (occurrence: None)
  Receive Date: 20100209
  Receipt Date: 20100128
  Transmission Date: 20100710
  Serious: Yes (Other)
  Sender: FDA-Public Use
  Company Number: US-ELI_LILLY_AND_COMPANY-US200809006374

PATIENT
  Age: 58 Year
  Weight: 86.168 kg

DRUGS (7)
  1. BYETTA [Suspect]
     Indication: TYPE 2 DIABETES MELLITUS
     Dosage: 5 UG, 2/D
     Route: 065
     Dates: start: 20070501, end: 20070601
  2. BYETTA [Suspect]
     Dosage: 10 UG, 2/D
     Dates: start: 20070601
  3. RAMIPRIL [Concomitant]
     Indication: BLOOD PRESSURE
     Dosage: 10 MG, UNK
     Route: 048
     Dates: start: 20070501
  4. METFORMIN HCL [Concomitant]
     Indication: DIABETES MELLITUS
     Dosage: 500 MG, 2/D
  5. AVANDIA [Concomitant]
     Indication: DIABETES MELLITUS
     Dates: start: 20070101
  6. ASPIRIN [Concomitant]
     Indication: DIABETES MELLITUS
     Dosage: 81 MG, UNK
  7. SIMVASTATIN [Concomitant]
     Indication: BLOOD CHOLESTEROL
     Dosage: 40 MG, UNK
     Dates: start: 20070101

REACTIONS (3)
  - BILE DUCT STONE [None]
  - PANCREATITIS [None]
  - WEIGHT DECREASED [None]
